FAERS Safety Report 16545923 (Version 1)
Quarter: 2019Q3

REPORT INFORMATION
  Report Type: Spontaneous
  Country: US (occurrence: US)
  Receive Date: 20190528
  Receipt Date: 20190528
  Transmission Date: 20191004
  Serious: No
  Sender: FDA-Public Use
  Company Number: None

PATIENT
  Age: 72 Year
  Sex: Male
  Weight: 99.79 kg

DRUGS (10)
  1. GLIMEPRIDE [Concomitant]
     Active Substance: GLIMEPIRIDE
  2. MAGNESIUM [Concomitant]
     Active Substance: MAGNESIUM
  3. TRULICITY [Suspect]
     Active Substance: DULAGLUTIDE
     Indication: DIABETES MELLITUS
     Dates: start: 20190406, end: 20190506
  4. FISH OIL [Concomitant]
     Active Substance: FISH OIL
  5. VITAMIN B [Concomitant]
     Active Substance: VITAMIN B
  6. ASPIRIN 81 MG [Concomitant]
     Active Substance: ASPIRIN
  7. ENBREL [Concomitant]
     Active Substance: ETANERCEPT
  8. VITAMIN D3 [Concomitant]
     Active Substance: CHOLECALCIFEROL
  9. LOSARTAN. [Concomitant]
     Active Substance: LOSARTAN
  10. METFORMIN [Concomitant]
     Active Substance: METFORMIN HYDROCHLORIDE

REACTIONS (2)
  - Therapy cessation [None]
  - Taste disorder [None]

NARRATIVE: CASE EVENT DATE: 20190406
